FAERS Safety Report 6571947-5 (Version None)
Quarter: 2010Q1

REPORT INFORMATION
  Report Type: 
  Country: None (occurrence: None)
  Receive Date: 20100205
  Receipt Date: 20100129
  Transmission Date: 20100710
  Serious: Yes (Death, Life-Threatening, Hospitalization)
  Sender: FDA-Public Use
  Company Number: FR-ROCHE-682738

PATIENT
  Age: 58 Year
  Sex: Female

DRUGS (5)
  1. HERCEPTIN [Suspect]
     Dosage: FORM: POWDER AND SOLVENT FOR SOLUTION FOR INFUSION. ROUTE: INTRAVENOUS (NOT OTHERWISE SPECIFIED).
     Route: 042
     Dates: start: 20070401, end: 20071001
  2. TAXOTERE [Suspect]
     Dosage: FORM: SOLUTION FOR INFUSION.  ROUTE: INTRAVENOUS (NOT OTHERWISE SPECIFIED). STRENGTH: 80 MG/ML.
     Route: 042
     Dates: start: 20070201, end: 20070401
  3. FLUOROURACIL [Suspect]
     Dosage: FORM: SOLUTION FOR INFUSION.  ROUTE: INTRAVENOUS (NOT OTHERWISE SPECIFIED).
     Route: 042
     Dates: start: 20061201, end: 20070201
  4. EPIRUBICIN [Suspect]
     Dosage: FORM: SOLUTION FOR INFUSION. ROUTE: INTRAVENOUS (NOT OTHERWISE SPECIFIED).
     Route: 042
     Dates: start: 20061201, end: 20070201
  5. ENDOXAN [Suspect]
     Dosage: FORM: POWDER+SOLVENT (LYOPHILISATE). ROUTE: INTRAVENOUS (NOT OTHERWISE SPECIFIED.
     Route: 042
     Dates: start: 20061201, end: 20070201

REACTIONS (1)
  - ACUTE MYELOID LEUKAEMIA [None]
